FAERS Safety Report 5520818-1 (Version None)
Quarter: 2007Q4

REPORT INFORMATION
  Report Type: 
  Country: None (occurrence: None)
  Receive Date: 20071119
  Receipt Date: 20071108
  Transmission Date: 20080405
  Serious: Yes (Hospitalization)
  Sender: FDA-Public Use
  Company Number: US-AMGEN-QUU250842

PATIENT
  Sex: Male

DRUGS (4)
  1. ENBREL [Suspect]
     Indication: PSORIASIS
     Route: 058
     Dates: start: 20020611, end: 20061018
  2. CELEBREX [Concomitant]
     Route: 048
  3. VICODIN [Concomitant]
  4. PRILOSEC [Concomitant]

REACTIONS (11)
  - CONSTIPATION [None]
  - GASTRIC VARICES [None]
  - HEPATITIS C [None]
  - ILEUS [None]
  - LIVER FUNCTION TEST ABNORMAL [None]
  - PANCYTOPENIA [None]
  - PNEUMOCOCCAL SEPSIS [None]
  - PNEUMONIA PNEUMOCOCCAL [None]
  - PNEUMONIA STREPTOCOCCAL [None]
  - PORTAL HYPERTENSION [None]
  - SPLENOMEGALY [None]
